FAERS Safety Report 5427456-X (Version None)
Quarter: 2007Q3

REPORT INFORMATION
  Report Type: 
  Country: None (occurrence: None)
  Receive Date: 20070824
  Receipt Date: 20070824
  Transmission Date: 20080115
  Serious: Yes (Life-Threatening, Disabling, Other)
  Sender: FDA-Public Use
  Company Number: None

PATIENT
  Age: 24 Year
  Sex: Female
  Weight: 58.0604 kg

DRUGS (1)
  1. PAROXETINE HCL [Suspect]
     Indication: SOCIAL PHOBIA
     Dosage: 10 MG 3 TIMES PO
     Route: 048
     Dates: start: 20070610, end: 20070823

REACTIONS (3)
  - ABNORMAL BEHAVIOUR [None]
  - ALCOHOL USE [None]
  - PERSONALITY CHANGE [None]
